FAERS Safety Report 24969263 (Version 1)
Quarter: 2025Q1

REPORT INFORMATION
  Report Type: Spontaneous
  Country: CA (occurrence: CA)
  Receive Date: 20250214
  Receipt Date: 20250214
  Transmission Date: 20250409
  Serious: Yes (Other)
  Sender: AUROBINDO
  Company Number: CA-AUROBINDO-AUR-APL-2025-007471

PATIENT
  Age: 58 Year
  Sex: Female

DRUGS (9)
  1. MIRTAZAPINE [Suspect]
     Active Substance: MIRTAZAPINE
     Indication: Product used for unknown indication
     Route: 048
  2. LANREOTIDE ACETATE [Suspect]
     Active Substance: LANREOTIDE ACETATE
     Indication: Gastroenteropancreatic neuroendocrine tumour disease
     Route: 058
  3. CAPECITABINE [Concomitant]
     Active Substance: CAPECITABINE
     Indication: Product used for unknown indication
     Route: 065
  4. LOPERAMIDE [Concomitant]
     Active Substance: LOPERAMIDE
     Indication: Product used for unknown indication
     Route: 065
  5. POLYETHYLENE GLYCOLS [Concomitant]
     Active Substance: POLYETHYLENE GLYCOLS
     Indication: Product used for unknown indication
     Dosage: UNK, ONCE A DAY
     Route: 065
  6. METOCLOPRAMIDE [Concomitant]
     Active Substance: METOCLOPRAMIDE
     Indication: Product used for unknown indication
     Route: 065
  7. MORPHINE [Concomitant]
     Active Substance: MORPHINE
     Indication: Product used for unknown indication
     Route: 065
  8. PANCREATIN [Concomitant]
     Active Substance: PANCRELIPASE
     Indication: Product used for unknown indication
     Route: 065
  9. TINZAPARIN [Concomitant]
     Active Substance: TINZAPARIN
     Indication: Product used for unknown indication
     Dosage: UNK, ONCE A DAY
     Route: 065

REACTIONS (3)
  - Fall [Not Recovered/Not Resolved]
  - Somnolence [Not Recovered/Not Resolved]
  - Upper limb fracture [Not Recovered/Not Resolved]
